FAERS Safety Report 7319763-0 (Version None)
Quarter: 2011Q1

REPORT INFORMATION
  Report Type: 
  Country: None (occurrence: None)
  Receive Date: 20110228
  Receipt Date: 20100913
  Transmission Date: 20110831
  Serious: No
  Sender: FDA-Public Use
  Company Number: A0880836A

PATIENT
  Age: 32 Year
  Sex: Female

DRUGS (1)
  1. LAMOTRIGINE [Suspect]
     Indication: EPILEPSY
     Dosage: 150MG PER DAY
     Route: 048

REACTIONS (1)
  - DRUG EXPOSURE DURING PREGNANCY [None]
